FAERS Safety Report 4508046-X (Version None)
Quarter: 2004Q4

REPORT INFORMATION
  Report Type: 
  Country: None (occurrence: None)
  Receive Date: 20041123
  Receipt Date: 20031001
  Transmission Date: 20050328
  Serious: No
  Sender: FDA-Public Use
  Company Number: US-GLAXOSMITHKLINE-A0428273A

PATIENT
  Age: 37 Year
  Sex: Female

DRUGS (4)
  1. WELLBUTRIN [Suspect]
     Indication: DEPRESSION
  2. WELLBUTRIN [Suspect]
  3. WELLBUTRIN [Suspect]
     Dosage: 150MG PER DAY
     Route: 048
  4. ULTRACET [Concomitant]

REACTIONS (4)
  - ANXIETY [None]
  - HYPERHIDROSIS [None]
  - IRRITABILITY [None]
  - URTICARIA [None]
